FAERS Safety Report 18821752 (Version 1)
Quarter: 2021Q1

REPORT INFORMATION
  Report Type: Spontaneous
  Country: US (occurrence: US)
  Receive Date: 20210202
  Receipt Date: 20210202
  Transmission Date: 20210419
  Serious: Yes (Hospitalization)
  Sender: FDA-Public Use
  Company Number: None

PATIENT
  Age: 64 Year
  Sex: Female
  Weight: 132 kg

DRUGS (2)
  1. MITOMYCIN C [Suspect]
     Active Substance: MITOMYCIN
     Dates: end: 20210125
  2. XELODA [Suspect]
     Active Substance: CAPECITABINE
     Dates: end: 20210129

REACTIONS (1)
  - Chest pain [None]

NARRATIVE: CASE EVENT DATE: 20210129
